FAERS Safety Report 25021460 (Version 2)
Quarter: 2025Q2

REPORT INFORMATION
  Report Type: Spontaneous
  Country: SE (occurrence: SE)
  Receive Date: 20250228
  Receipt Date: 20250611
  Transmission Date: 20250716
  Serious: Yes (Other)
  Sender: ROCHE
  Company Number: SE-ROCHE-10000215273

PATIENT
  Sex: Female

DRUGS (6)
  1. ROZLYTREK [Suspect]
     Active Substance: ENTRECTINIB
     Indication: Non-small cell lung cancer
     Route: 065
     Dates: start: 20241121
  2. ROZLYTREK [Suspect]
     Active Substance: ENTRECTINIB
     Route: 065
     Dates: start: 20241213, end: 20241217
  3. METOPROLOL [Concomitant]
     Active Substance: METOPROLOL
  4. CANDESARTAN [Concomitant]
     Active Substance: CANDESARTAN
  5. CRIZOTINIB [Concomitant]
     Active Substance: CRIZOTINIB
  6. LORLATINIB [Concomitant]
     Active Substance: LORLATINIB

REACTIONS (4)
  - Mental disorder [Unknown]
  - Confusional state [Unknown]
  - Agitation [Unknown]
  - Cardiac failure [Unknown]
